FAERS Safety Report 7354007-5 (Version None)
Quarter: 2011Q1

REPORT INFORMATION
  Report Type: 
  Country: None (occurrence: None)
  Receive Date: 20110315
  Receipt Date: 20110301
  Transmission Date: 20110831
  Serious: Yes (Other)
  Sender: FDA-Public Use
  Company Number: DE-BAUSCH-2011BL000730

PATIENT
  Age: 7 Year
  Sex: Male

DRUGS (1)
  1. ZYKLOLAT EDO AUGENTROPFEN [Suspect]
     Indication: OPHTHALMOLOGICAL EXAMINATION
     Route: 047
     Dates: start: 20080101, end: 20080101

REACTIONS (4)
  - HALLUCINATION [None]
  - CIRCULATORY COLLAPSE [None]
  - DRUG EFFECT PROLONGED [None]
  - TIC [None]
